FAERS Safety Report 8867778 (Version 1)
Quarter: 2012Q4

REPORT INFORMATION
  Report Type: 
  Country: US (occurrence: US)
  Receive Date: 20121026
  Receipt Date: 20121026
  Transmission Date: 20130627
  Serious: No
  Sender: FDA-Public Use
  Company Number: US-AMGEN-USASP2012040639

PATIENT
  Sex: Female
  Weight: 61.22 kg

DRUGS (6)
  1. ENBREL [Suspect]
     Indication: PRODUCT USED FOR UNKNOWN INDICATION
     Dosage: 50 mg, qwk
     Route: 058
  2. LYRICA [Concomitant]
     Dosage: 100 mg, UNK
  3. PRILOSEC                           /00661201/ [Concomitant]
     Dosage: 20 mg, UNK
  4. FLEXERIL                           /00428402/ [Concomitant]
     Dosage: 5 mg, UNK
  5. FOLIC ACID [Concomitant]
  6. MULTIVITAMIN                       /00097801/ [Concomitant]

REACTIONS (1)
  - Drug ineffective [Unknown]
